FAERS Safety Report 10015561 (Version 1)
Quarter: 2014Q1

REPORT INFORMATION
  Report Type: Spontaneous
  Country: US (occurrence: US)
  Receive Date: 20140317
  Receipt Date: 20140317
  Transmission Date: 20141002
  Serious: Yes (Disabling)
  Sender: FDA-Public Use
  Company Number: US-GE HEALTHCARE MEDICAL DIAGNOSTICS-OSCN-PR-0908S-0389

PATIENT
  Sex: Female

DRUGS (11)
  1. OMNISCAN [Suspect]
     Indication: VASCULAR GRAFT THROMBOSIS
     Route: 042
     Dates: start: 20051128, end: 20051128
  2. ATENOLOL [Concomitant]
  3. AZATHIOPRINE [Concomitant]
  4. DIOVAN [Concomitant]
  5. ENALAPRIL [Concomitant]
  6. EPOGEN [Concomitant]
  7. PREDNISONE [Concomitant]
  8. PROGRAF [Concomitant]
  9. SENSIPAR [Concomitant]
  10. SODIUM BICARB [Concomitant]
  11. VENOFER [Concomitant]

REACTIONS (1)
  - Nephrogenic systemic fibrosis [Not Recovered/Not Resolved]
